FAERS Safety Report 16259249 (Version 1)
Quarter: 2019Q2

REPORT INFORMATION
  Report Type: Spontaneous
  Country: FR (occurrence: FR)
  Receive Date: 20190501
  Receipt Date: 20190501
  Transmission Date: 20190711
  Serious: Yes (Hospitalization)
  Sender: FDA-Public Use
  Company Number: FR-TEVA-2019-FR-1043397

PATIENT
  Age: 77 Year
  Sex: Male
  Weight: 112 kg

DRUGS (2)
  1. GENTAMICINE [Suspect]
     Active Substance: GENTAMICIN
     Indication: LISTERIOSIS
     Route: 042
     Dates: start: 20180626, end: 20180704
  2. AMOXICILLINE [Suspect]
     Active Substance: AMOXICILLIN
     Indication: LISTERIOSIS
     Route: 042
     Dates: start: 20180626

REACTIONS (2)
  - Crystalluria [Recovered/Resolved]
  - Acute kidney injury [Recovered/Resolved]

NARRATIVE: CASE EVENT DATE: 20180710
